FAERS Safety Report 9773946 (Version 1)
Quarter: 2013Q4

REPORT INFORMATION
  Report Type: Spontaneous
  Country: US (occurrence: US)
  Receive Date: 20131220
  Receipt Date: 20131220
  Transmission Date: 20140711
  Serious: No
  Sender: FDA-Public Use
  Company Number: US-B.I. PHARMACEUTICALS,INC./RIDGEFIELD-2013-BI-39355BP

PATIENT
  Sex: Female
  Weight: 84 kg

DRUGS (1)
  1. COMBIVENT [Suspect]
     Indication: PULMONARY SARCOIDOSIS
     Dosage: STRENGTH: 18 MCG / 103 MCG
     Route: 055
     Dates: start: 1999

REACTIONS (2)
  - Cataract [Recovered/Resolved]
  - Off label use [Recovered/Resolved]
